FAERS Safety Report 6415301-5 (Version None)
Quarter: 2009Q4

REPORT INFORMATION
  Report Type: 
  Country: None (occurrence: None)
  Receive Date: 20091027
  Receipt Date: 20091014
  Transmission Date: 20100525
  Serious: Yes (Hospitalization)
  Sender: FDA-Public Use
  Company Number: PHHO2007MX14337

PATIENT
  Sex: Female

DRUGS (4)
  1. DIOVAN HCT [Suspect]
     Indication: HYPERTENSION
     Dosage: 1 DF (160/25 MG) PER DAY
     Route: 048
     Dates: start: 20050101, end: 20090914
  2. FUROSEMIDE [Concomitant]
  3. FOLIC ACID [Concomitant]
  4. RANITIDINE [Concomitant]

REACTIONS (3)
  - HYPERTENSION [None]
  - KNEE ARTHROPLASTY [None]
  - LIMB PROSTHESIS USER [None]
